FAERS Safety Report 24120407 (Version 1)
Quarter: 2024Q3

REPORT INFORMATION
  Report Type: Spontaneous
  Country: US (occurrence: US)
  Receive Date: 20240722
  Receipt Date: 20240722
  Transmission Date: 20241017
  Serious: No
  Sender: PFIZER
  Company Number: US-PFIZER INC-PV202400093796

PATIENT
  Age: 71 Year
  Sex: Male

DRUGS (2)
  1. MEKTOVI [Suspect]
     Active Substance: BINIMETINIB
     Dosage: 3 TABS ORALLY EVERY 12 HOURS X 30 DAYS C73.0
     Route: 048
  2. BRAFTOVI [Suspect]
     Active Substance: ENCORAFENIB
     Dosage: 6 CAPS ORALLY ONCE A DAY X 30 DAYS C73.0
     Route: 048

REACTIONS (2)
  - Speech disorder [Unknown]
  - Product prescribing error [Unknown]
